FAERS Safety Report 8263452-5 (Version None)
Quarter: 2012Q1

REPORT INFORMATION
  Report Type: 
  Country: None (occurrence: None)
  Receive Date: 20120327
  Receipt Date: 20080711
  Transmission Date: 20120608
  Serious: Yes (Other)
  Sender: FDA-Public Use
  Company Number: PHEH2008US06214

PATIENT
  Age: 66 Year
  Sex: Male

DRUGS (1)
  1. GLEEVEC [Suspect]
     Dosage: 400MG, QD, ORAL
     Route: 048
     Dates: start: 20080523, end: 20080707

REACTIONS (4)
  - SWELLING [None]
  - MALAISE [None]
  - FLUID RETENTION [None]
  - RENAL IMPAIRMENT [None]
